FAERS Safety Report 7822787-8 (Version None)
Quarter: 2011Q4

REPORT INFORMATION
  Report Type: 
  Country: None (occurrence: None)
  Receive Date: 20111018
  Receipt Date: 20110316
  Transmission Date: 20120403
  Serious: No
  Sender: FDA-Public Use
  Company Number: US-ASTRAZENECA-2011SE07806

PATIENT
  Age: 58 Year
  Sex: Female

DRUGS (2)
  1. SYMBICORT [Suspect]
     Indication: ASTHMA
     Dosage: 160/4.5MCG, BID
     Route: 055
  2. PULMICORT FLEXHALER [Concomitant]
     Route: 055

REACTIONS (2)
  - DRUG HYPERSENSITIVITY [None]
  - CHEST PAIN [None]
